FAERS Safety Report 12170676 (Version 2)
Quarter: 2016Q2

REPORT INFORMATION
  Report Type: Spontaneous
  Country: ES (occurrence: ES)
  Receive Date: 20160311
  Receipt Date: 20160503
  Transmission Date: 20160815
  Serious: Yes (Other)
  Sender: FDA-Public Use
  Company Number: GB-SUN PHARMACEUTICAL INDUSTRIES LTD-2016RR-111393

PATIENT
  Age: 56 Year
  Sex: Male

DRUGS (2)
  1. DEXKETOPROFEN [Concomitant]
     Active Substance: DEXKETOPROFEN
     Indication: ACCIDENT
     Dosage: 25 MG, PRN, ON OCCASIONS
     Route: 065
  2. AMOXICILLIN/CLAVULANIC ACID [Suspect]
     Active Substance: AMOXICILLIN\CLAVULANIC ACID
     Indication: ACCIDENT
     Dosage: 2 G, BID
     Route: 065

REACTIONS (1)
  - Hepatitis cholestatic [Recovered/Resolved]
